FAERS Safety Report 5123166-7 (Version None)
Quarter: 2006Q4

REPORT INFORMATION
  Report Type: 
  Country: None (occurrence: None)
  Receive Date: 20061009
  Receipt Date: 20060822
  Transmission Date: 20070319
  Serious: Yes (Hospitalization)
  Sender: FDA-Public Use
  Company Number: JP-MERCK-0608USA05497

PATIENT
  Age: 71 Year
  Sex: Male

DRUGS (6)
  1. COZAAR [Suspect]
     Indication: HYPERTENSION
     Route: 048
     Dates: end: 20060818
  2. AMLODIN [Suspect]
     Indication: HYPERTENSION
     Route: 048
  3. BUNAZOSIN HYDROCHLORIDE [Suspect]
     Indication: HYPERTENSION
     Route: 048
     Dates: end: 20060818
  4. LANDSEN [Suspect]
     Indication: EPILEPSY
     Route: 048
     Dates: end: 20060818
  5. INTEBAN [Suspect]
     Indication: OSTEOARTHRITIS
     Route: 065
     Dates: end: 20060818
  6. ZOLPIDEM TARTRATE [Suspect]
     Indication: INSOMNIA
     Route: 048

REACTIONS (2)
  - HEMIPLEGIA [None]
  - RHABDOMYOLYSIS [None]
